FAERS Safety Report 4337382-5 (Version None)
Quarter: 2004Q2

REPORT INFORMATION
  Report Type: 
  Country: None (occurrence: None)
  Receive Date: 20040406
  Receipt Date: 20040123
  Transmission Date: 20050107
  Serious: Yes (Other)
  Sender: FDA-Public Use
  Company Number: 357156

PATIENT
  Age: 42 Year
  Sex: Male
  Weight: 70.3 kg

DRUGS (2)
  1. FUZEON [Suspect]
     Indication: HIV INFECTION
     Dosage: 90 MG 2 PER DAY SUBCUTANEOUS
     Route: 058
     Dates: start: 20030401, end: 20030815
  2. ANTIRETROVIRAL NOS (ANTIRETROVIRAL NOS) [Concomitant]

REACTIONS (4)
  - CEREBRAL TOXOPLASMOSIS [None]
  - DYSGEUSIA [None]
  - VISUAL FIELD DEFECT [None]
  - VOMITING [None]
